FAERS Safety Report 10305967 (Version 2)
Quarter: 2014Q3

REPORT INFORMATION
  Report Type: Spontaneous
  Country: US (occurrence: None)
  Receive Date: 20120817
  Receipt Date: 20140815
  Transmission Date: 20150326
  Serious: Yes (Life-Threatening, Hospitalization, Other)
  Sender: FDA-Public Use
  Company Number: ADR-2011-11309

PATIENT
  Sex: Male

DRUGS (4)
  1. MORPHINE INTRATHECAL [Suspect]
     Active Substance: MORPHINE
  2. LIDOCAINE. [Suspect]
     Active Substance: LIDOCAINE
  3. BACLOFEN INTRATHECAL [Suspect]
     Active Substance: BACLOFEN
     Indication: MUSCLE SPASTICITY
     Dosage: UNK
  4. BUPIVACAINE [Suspect]
     Active Substance: BUPIVACAINE

REACTIONS (5)
  - Pain [None]
  - Overdose [None]
  - Sedation [None]
  - Loss of consciousness [None]
  - Coma [None]
